FAERS Safety Report 5026653-5 (Version None)
Quarter: 2006Q2

REPORT INFORMATION
  Report Type: 
  Country: None (occurrence: None)
  Receive Date: 20060615
  Receipt Date: 20060613
  Transmission Date: 20061013
  Serious: Yes (Other)
  Sender: FDA-Public Use
  Company Number: CA-GLAXOSMITHKLINE-A0609017A

PATIENT
  Age: 58 Year
  Sex: Male

DRUGS (5)
  1. TIMENTIN [Suspect]
     Indication: DRUG USE FOR UNKNOWN INDICATION
     Dosage: 3.1G FOUR TIMES PER DAY
     Route: 042
  2. DILAUDID [Concomitant]
  3. GRAVOL TAB [Concomitant]
  4. HEPARIN [Concomitant]
  5. MORPHINE [Concomitant]

REACTIONS (3)
  - CONDITION AGGRAVATED [None]
  - HYPERBILIRUBINAEMIA [None]
  - JAUNDICE CHOLESTATIC [None]
